FAERS Safety Report 24770284 (Version 1)
Quarter: 2024Q4

REPORT INFORMATION
  Report Type: Spontaneous
  Country: US (occurrence: US)
  Receive Date: 20241224
  Receipt Date: 20241224
  Transmission Date: 20250115
  Serious: No
  Sender: CELLTRION
  Company Number: US-CELLTRION INC.-2024US010178

PATIENT

DRUGS (6)
  1. RITUXIMAB [Suspect]
     Active Substance: RITUXIMAB
     Indication: Anti-glomerular basement membrane disease
     Dosage: 1000 MG (HOSPITAL DAY 5)
  2. RITUXIMAB [Suspect]
     Active Substance: RITUXIMAB
     Indication: Antineutrophil cytoplasmic antibody positive
     Dosage: 1000 MG (HOSPITAL DAY 19)
  3. METHYLPREDNISOLONE [Concomitant]
     Active Substance: METHYLPREDNISOLONE
     Indication: Anti-glomerular basement membrane disease
     Dosage: 1 G, ADMINISTERED FOR THREE DAYS
  4. METHYLPREDNISOLONE [Concomitant]
     Active Substance: METHYLPREDNISOLONE
     Indication: Antineutrophil cytoplasmic antibody
  5. PREDNISONE [Concomitant]
     Active Substance: PREDNISONE
     Indication: Anti-glomerular basement membrane disease
     Dosage: 1 MG/KG, THROUGH THE END OF HOSPITALIZATION
     Route: 048
  6. PREDNISONE [Concomitant]
     Active Substance: PREDNISONE
     Indication: Antineutrophil cytoplasmic antibody
     Dosage: ON DISCHARGE, THE PATIENT WAS PRESCRIBED AN 18-WEEK PREDNISONE TAPER
     Route: 048

REACTIONS (2)
  - Therapy partial responder [Unknown]
  - Intentional product use issue [Unknown]
